FAERS Safety Report 5863377-6 (Version None)
Quarter: 2008Q3

REPORT INFORMATION
  Report Type: 
  Country: None (occurrence: None)
  Receive Date: 20080828
  Receipt Date: 20080820
  Transmission Date: 20090109
  Serious: Yes (Hospitalization, Other)
  Sender: FDA-Public Use
  Company Number: PHEH2008US06921

PATIENT
  Sex: Female
  Weight: 47.7 kg

DRUGS (13)
  1. DESFERAL [Suspect]
     Indication: IRON OVERLOAD
     Dosage: 9000 MG, QD
     Route: 042
     Dates: start: 20080514, end: 20080620
  2. DEFERIPRONE [Concomitant]
     Indication: IRON OVERLOAD
     Dosage: 3500 MG DAILY DIVIDED TID
  3. TYLENOL W/ CODEINE [Concomitant]
     Dosage: ! TAB EVERY 4-6 HOURS AS NEEDED
  4. CALCIUM CARBONATE [Concomitant]
     Dosage: 2 ML PO BID
  5. DIGOXIN [Concomitant]
     Dosage: 0.25 MG DAILY
  6. ORTHO TRI-CYCLEN [Concomitant]
     Dosage: 1 TABLET DAILY
  7. L-CARNITINE [Concomitant]
     Dosage: 2 CAPSULES 4 TIMES A DAY
  8. ZOFRAN [Concomitant]
     Dosage: 8 MG Q 6H PRN
  9. ZANTAC [Concomitant]
     Dosage: 150 MG BID
  10. SCOPOLAMINE [Concomitant]
     Dosage: PATCH
  11. ZINC SULFATE [Concomitant]
     Dosage: 220 MG BID
  12. LISINOPRIL [Concomitant]
     Dosage: 20 MG DAILY
  13. METOPROLOL TARTRATE [Concomitant]
     Dosage: 12.5 MG DAILY

REACTIONS (17)
  - BACK PAIN [None]
  - BLOOD CREATININE INCREASED [None]
  - BRONCHOSCOPY ABNORMAL [None]
  - CHEST PAIN [None]
  - COMPUTERISED TOMOGRAM ABNORMAL [None]
  - DEHYDRATION [None]
  - DIZZINESS [None]
  - DRUG TOXICITY [None]
  - DYSPNOEA [None]
  - HYPOTENSION [None]
  - HYPOXIA [None]
  - INFLAMMATION [None]
  - LUNG DISORDER [None]
  - MUSCULOSKELETAL PAIN [None]
  - PAIN [None]
  - RESPIRATORY DISTRESS [None]
  - URINARY TRACT INFECTION [None]
